FAERS Safety Report 16274099 (Version 1)
Quarter: 2019Q2

REPORT INFORMATION
  Report Type: Spontaneous
  Country: US (occurrence: US)
  Receive Date: 20190506
  Receipt Date: 20190506
  Transmission Date: 20190711
  Serious: Yes (Other)
  Sender: FDA-Public Use
  Company Number: US-CIPLA (EU) LIMITED-2018US19250

PATIENT

DRUGS (2)
  1. TOPIRAMATE. [Suspect]
     Active Substance: TOPIRAMATE
     Dosage: UNK (MANUFACTURER UNKNOWN)
     Route: 065
  2. TOPIRAMATE. [Suspect]
     Active Substance: TOPIRAMATE
     Indication: MIGRAINE PROPHYLAXIS
     Dosage: 100 MG, BID
     Route: 048
     Dates: start: 201806, end: 201806

REACTIONS (3)
  - Suicidal ideation [Recovering/Resolving]
  - Product substitution issue [Unknown]
  - Depression [Recovering/Resolving]

NARRATIVE: CASE EVENT DATE: 201806
